FAERS Safety Report 7746730-5 (Version None)
Quarter: 2011Q3

REPORT INFORMATION
  Report Type: 
  Country: None (occurrence: None)
  Receive Date: 20110913
  Receipt Date: 20110908
  Transmission Date: 20111222
  Serious: Yes (Other)
  Sender: FDA-Public Use
  Company Number: JP-ABBOTT-11P-087-0730483-00

PATIENT
  Age: 39 Year
  Sex: Female

DRUGS (7)
  1. AMOXICILLIN [Suspect]
     Indication: GASTRIC ULCER
     Dosage: 0.5 CARD
     Route: 048
     Dates: start: 20110515, end: 20110521
  2. LANSOPRAZOLE [Suspect]
     Indication: HELICOBACTER INFECTION
     Dosage: 0.5 CARD, TWICE DAILY
     Dates: start: 20110515, end: 20110521
  3. PREDNISOLONE [Suspect]
     Indication: PRODUCT USED FOR UNKNOWN INDICATION
     Dates: start: 20110523
  4. CLARITHROMYCIN [Suspect]
     Indication: GASTRIC ULCER
  5. LANSOPRAZOLE [Suspect]
  6. AMOXICILLIN [Suspect]
     Indication: HELICOBACTER INFECTION
  7. CLARITHROMYCIN [Suspect]
     Indication: HELICOBACTER INFECTION
     Dosage: 0.5 CARD, TWICE DAILY
     Route: 048
     Dates: start: 20110515, end: 20110521

REACTIONS (8)
  - NAUSEA [None]
  - GLOSSODYNIA [None]
  - METRORRHAGIA [None]
  - DIZZINESS [None]
  - DIARRHOEA [None]
  - ORAL PAIN [None]
  - ERYTHEMA MULTIFORME [None]
  - ABDOMINAL PAIN [None]
